FAERS Safety Report 13702620 (Version 1)
Quarter: 2017Q2

REPORT INFORMATION
  Report Type: Spontaneous
  Country: BR (occurrence: BR)
  Receive Date: 20170629
  Receipt Date: 20170629
  Transmission Date: 20170830
  Serious: Yes (Other)
  Sender: FDA-Public Use
  Company Number: PHHY2017BR091560

PATIENT
  Sex: Male

DRUGS (3)
  1. ATENOLOL SANDOZ [Suspect]
     Active Substance: ATENOLOL
     Indication: ANTICOAGULANT THERAPY
     Dosage: 25 MG, UNK
     Route: 065
  2. SIMVASTATIN SANDOZ [Suspect]
     Active Substance: SIMVASTATIN
     Indication: ANTICOAGULANT THERAPY
     Dosage: 1 DF, QD, AT NIGHT
     Route: 065
  3. LOSARTAN. [Suspect]
     Active Substance: LOSARTAN
     Indication: ANTICOAGULANT THERAPY
     Dosage: 1 DF, QD, AT NIGHT
     Route: 065

REACTIONS (1)
  - Carotid artery stenosis [Unknown]
